FAERS Safety Report 13374241 (Version 1)
Quarter: 2017Q1

REPORT INFORMATION
  Report Type: Spontaneous
  Country: US (occurrence: US)
  Receive Date: 20170327
  Receipt Date: 20170327
  Transmission Date: 20170429
  Serious: Yes (Hospitalization)
  Sender: FDA-Public Use
  Company Number: None

PATIENT
  Age: 66 Year
  Sex: Male
  Weight: 75.5 kg

DRUGS (1)
  1. RIBAVIRIN. [Suspect]
     Active Substance: RIBAVIRIN
     Indication: HEPATITIS C
     Dates: start: 20150423, end: 20150523

REACTIONS (11)
  - Diarrhoea [None]
  - Fatigue [None]
  - Pain [None]
  - Urticaria [None]
  - Faeces discoloured [None]
  - Asthenia [None]
  - Pruritus [None]
  - Insomnia [None]
  - Dizziness [None]
  - Headache [None]
  - Chills [None]

NARRATIVE: CASE EVENT DATE: 20150827
